FAERS Safety Report 8667387 (Version 3)
Quarter: 2014Q3

REPORT INFORMATION
  Report Type: Spontaneous
  Country: FR (occurrence: FR)
  Receive Date: 20120717
  Receipt Date: 20140703
  Transmission Date: 20150326
  Serious: Yes (Death, Hospitalization, Other)
  Sender: FDA-Public Use
  Company Number: FR-VERTEX PHARMACEUTICALS INC.-000000000000001130

PATIENT
  Age: 56 Year
  Sex: Male
  Weight: 50 kg

DRUGS (5)
  1. FRAXODI [Concomitant]
     Active Substance: NADROPARIN CALCIUM
     Dosage: 0.5 ML, QD
  2. INCIVO [Suspect]
     Active Substance: TELAPREVIR
     Dosage: UNK
     Route: 065
     Dates: end: 201206
  3. PEGYLATED INTERFERON ALPHA NOS [Concomitant]
     Active Substance: PEGINTERFERON ALFA-2A OR PEGINTERFERON ALFA-2B
     Indication: HEPATITIS C
     Dosage: 0.5 ML  PER DAY
     Route: 058
     Dates: start: 20120102, end: 20120704
  4. REBETOL [Concomitant]
     Active Substance: RIBAVIRIN
     Indication: HEPATITIS C
     Dosage: 400MG-0-600MG
     Route: 065
     Dates: start: 20120102, end: 20120704
  5. INCIVO [Suspect]
     Active Substance: TELAPREVIR
     Indication: HEPATITIS C
     Dosage: 750 MG, TID
     Route: 065
     Dates: start: 20120102, end: 20120326

REACTIONS (8)
  - Tinnitus [Unknown]
  - Hepatocellular carcinoma [Fatal]
  - Portal vein thrombosis [Fatal]
  - Asthenia [Unknown]
  - Hypoacusis [Unknown]
  - Visual acuity reduced [Unknown]
  - Gastrointestinal motility disorder [Unknown]
  - Alanine aminotransferase increased [Unknown]

NARRATIVE: CASE EVENT DATE: 20120613
